FAERS Safety Report 7678370-0 (Version None)
Quarter: 2011Q3

REPORT INFORMATION
  Report Type: 
  Country: None (occurrence: None)
  Receive Date: 20110811
  Receipt Date: 20110809
  Transmission Date: 20111222
  Serious: Yes (Hospitalization)
  Sender: FDA-Public Use
  Company Number: JP-ABBOTT-11P-087-0844958-00

PATIENT
  Sex: Male
  Weight: 48 kg

DRUGS (6)
  1. PREDNISOLONE [Concomitant]
     Indication: CROHN'S DISEASE
     Route: 048
  2. FAMOTIDINE [Concomitant]
     Indication: CROHN'S DISEASE
     Route: 048
  3. MESALAMINE [Concomitant]
     Indication: CROHN'S DISEASE
     Route: 048
  4. URSODIOL [Concomitant]
     Indication: VIRAL HEPATITIS CARRIER
     Route: 048
  5. HUMIRA [Suspect]
     Indication: CROHN'S DISEASE
     Dosage: (160MG)
     Route: 058
     Dates: start: 20101204, end: 20101204
  6. CLOSTRIDIUM BUTYRICUM [Concomitant]
     Indication: CROHN'S DISEASE
     Route: 048

REACTIONS (3)
  - DIARRHOEA [None]
  - SMALL INTESTINAL PERFORATION [None]
  - INFECTIOUS PERITONITIS [None]
